FAERS Safety Report 5642990-5 (Version None)
Quarter: 2008Q1

REPORT INFORMATION
  Report Type: 
  Country: None (occurrence: None)
  Receive Date: 20080228
  Receipt Date: 20080220
  Transmission Date: 20080703
  Serious: Yes (Other)
  Sender: FDA-Public Use
  Company Number: B0507971A

PATIENT
  Age: 17 Year
  Sex: Male

DRUGS (4)
  1. RELENZA [Suspect]
     Indication: INFLUENZA
     Route: 055
     Dates: start: 20080126, end: 20080128
  2. PL [Suspect]
     Indication: DRUG USE FOR UNKNOWN INDICATION
     Route: 048
  3. LOXONIN [Suspect]
     Indication: DRUG USE FOR UNKNOWN INDICATION
     Route: 065
  4. UNKNOWN DRUG [Concomitant]
     Route: 065

REACTIONS (5)
  - ENCEPHALOPATHY [None]
  - EPILEPSY [None]
  - FAMILY STRESS [None]
  - PSYCHIATRIC SYMPTOM [None]
  - SOMATOFORM DISORDER [None]
